FAERS Safety Report 7080807-5 (Version None)
Quarter: 2010Q4

REPORT INFORMATION
  Report Type: 
  Country: None (occurrence: None)
  Receive Date: 20101103
  Receipt Date: 20101028
  Transmission Date: 20110411
  Serious: Yes (Other)
  Sender: FDA-Public Use
  Company Number: DE-SANOFI-AVENTIS-2010SA065946

PATIENT

DRUGS (2)
  1. MULTAQ [Suspect]
     Route: 065
     Dates: start: 20100101
  2. AMIODARONE HCL [Suspect]
     Route: 065
     Dates: end: 20100101

REACTIONS (1)
  - HYPERTHYROIDISM [None]
